FAERS Safety Report 12408775 (Version 1)
Quarter: 2016Q2

REPORT INFORMATION
  Report Type: Spontaneous
  Country: JP (occurrence: JP)
  Receive Date: 20160526
  Receipt Date: 20160526
  Transmission Date: 20160815
  Serious: Yes (Other)
  Sender: FDA-Public Use
  Company Number: JP-SA-2016SA098767

PATIENT
  Age: 39 Year
  Sex: Female

DRUGS (4)
  1. TEGAFUR URACIL [Concomitant]
     Active Substance: TEGAFUR
  2. OXALIPLATIN. [Suspect]
     Active Substance: OXALIPLATIN
     Indication: METASTASES TO LYMPH NODES
     Dosage: 10 COURSES
     Route: 065
     Dates: start: 200606
  3. FLUOROURACIL. [Suspect]
     Active Substance: FLUOROURACIL
     Indication: METASTASES TO LYMPH NODES
     Dosage: INFUSION; 10 COURSES
     Route: 065
     Dates: start: 200606
  4. LEUCOVORIN. [Suspect]
     Active Substance: LEUCOVORIN
     Indication: METASTASES TO LYMPH NODES
     Dosage: 10 COURSES
     Route: 065
     Dates: start: 200606

REACTIONS (1)
  - Malignant neoplasm progression [Recovered/Resolved]

NARRATIVE: CASE EVENT DATE: 2006
